FAERS Safety Report 15222544 (Version 1)
Quarter: 2018Q3

REPORT INFORMATION
  Report Type: Spontaneous
  Country: US (occurrence: US)
  Receive Date: 20180705
  Receipt Date: 20180705
  Transmission Date: 20181010
  Serious: Yes (Disabling)
  Sender: FDA-Public Use
  Company Number: None

PATIENT
  Age: 62 Year
  Sex: Female
  Weight: 61.23 kg

DRUGS (1)
  1. BOTOX [Suspect]
     Active Substance: ONABOTULINUMTOXINA

REACTIONS (9)
  - Blepharospasm [None]
  - Asthenia [None]
  - Dry mouth [None]
  - Muscular weakness [None]
  - Headache [None]
  - Fatigue [None]
  - Neck pain [None]
  - Visual impairment [None]
  - Urinary incontinence [None]

NARRATIVE: CASE EVENT DATE: 20180524
